FAERS Safety Report 21113820 (Version 2)
Quarter: 2022Q3

REPORT INFORMATION
  Report Type: Spontaneous
  Country: JP (occurrence: JP)
  Receive Date: 20220721
  Receipt Date: 20220725
  Transmission Date: 20221027
  Serious: Yes (Death, Other)
  Sender: FDA-Public Use
  Company Number: JP-CELGENE-JPN-20211108284

PATIENT
  Age: 50 Year
  Sex: Male
  Weight: 81 kg

DRUGS (2)
  1. VIDAZA [Suspect]
     Active Substance: AZACITIDINE
     Indication: Primary myelofibrosis
     Dosage: FREQUENCY TEXT: NOT PROVIDED?75 MILLIGRAM/SQ. METER?START DATE : 01-FEB-2018
     Route: 065
     Dates: start: 2018, end: 2018
  2. CYTARABINE [Suspect]
     Active Substance: CYTARABINE
     Indication: Product used for unknown indication
     Dosage: 1000 MG/M2 (1000 MG/M2/24 HOURS)
     Route: 065
     Dates: start: 2018

REACTIONS (1)
  - Sepsis [Fatal]

NARRATIVE: CASE EVENT DATE: 20180101
